FAERS Safety Report 17445272 (Version 4)
Quarter: 2023Q4

REPORT INFORMATION
  Report Type: Spontaneous
  Country: US (occurrence: US)
  Receive Date: 20200221
  Receipt Date: 20231218
  Transmission Date: 20240109
  Serious: No
  Sender: FDA-Public Use
  Company Number: US-PFIZER INC-2020078939

PATIENT
  Age: 71 Year
  Sex: Male

DRUGS (2)
  1. LORBRENA [Suspect]
     Active Substance: LORLATINIB
     Indication: Lung neoplasm malignant
     Dosage: 100 MG, DAILY (TAKE 1 TABLET)
     Route: 048
     Dates: start: 20190501
  2. LORBRENA [Suspect]
     Active Substance: LORLATINIB
     Indication: Salivary gland cancer

REACTIONS (1)
  - Nasopharyngitis [Unknown]
